FAERS Safety Report 23863849 (Version 1)
Quarter: 2024Q2

REPORT INFORMATION
  Report Type: Spontaneous
  Country: CA (occurrence: CA)
  Receive Date: 20240516
  Receipt Date: 20240516
  Transmission Date: 20240715
  Serious: Yes (Other)
  Sender: FDA-Public Use
  Company Number: CA-SANDOZ-SDZ2024CA049002

PATIENT
  Age: 62 Year
  Sex: Male

DRUGS (8)
  1. HYDROCORTISONE [Suspect]
     Active Substance: HYDROCORTISONE
     Indication: Product used for unknown indication
     Dosage: UNK
     Route: 065
  2. ALLOPURINOL [Concomitant]
     Active Substance: ALLOPURINOL
     Indication: Product used for unknown indication
     Dosage: 1 DF
     Route: 065
  3. CANDESARTAN [Concomitant]
     Active Substance: CANDESARTAN
     Indication: Product used for unknown indication
     Dosage: 1 DF
     Route: 065
  4. PANTOPRAZOLE [Concomitant]
     Active Substance: PANTOPRAZOLE
     Indication: Product used for unknown indication
     Dosage: 1 DF
     Route: 065
  5. RUXIENCE [Concomitant]
     Active Substance: RITUXIMAB-PVVR
     Indication: Rheumatoid arthritis
     Dosage: 1000 MG
     Route: 042
  6. RUXIENCE [Concomitant]
     Active Substance: RITUXIMAB-PVVR
     Dosage: 1000 MG
     Route: 042
  7. RUXIENCE [Concomitant]
     Active Substance: RITUXIMAB-PVVR
     Dosage: 1000 MG
     Route: 042
  8. RUXIENCE [Concomitant]
     Active Substance: RITUXIMAB-PVVR
     Dosage: 1000 MG
     Route: 042

REACTIONS (1)
  - Condition aggravated [Not Recovered/Not Resolved]
